FAERS Safety Report 6524590-8 (Version None)
Quarter: 2010Q1

REPORT INFORMATION
  Report Type: 
  Country: None (occurrence: None)
  Receive Date: 20100104
  Receipt Date: 20091222
  Transmission Date: 20100710
  Serious: Yes (Hospitalization, Disabling, Other)
  Sender: FDA-Public Use
  Company Number: PHHY2009JP53633

PATIENT
  Sex: Male
  Weight: 58 kg

DRUGS (16)
  1. DIOVAN [Suspect]
     Indication: HYPERTENSION
     Dosage: 40 MG, ONCE DAILY
     Route: 048
     Dates: start: 20081126, end: 20081211
  2. DIOVAN [Suspect]
     Dosage: 40 MG, TWICE DAILY
     Route: 048
     Dates: start: 20081212, end: 20090208
  3. DIOVAN [Suspect]
     Dosage: 120 MG DAILY IN 2 DOSES
     Route: 048
     Dates: start: 20090209
  4. ALMARL [Concomitant]
     Indication: HYPERTENSION
     Dosage: 10 MG
     Route: 048
     Dates: start: 20081209
  5. URITOS [Concomitant]
     Dosage: 0.2 MG DAILY
     Route: 048
     Dates: start: 20080916
  6. URITOS [Concomitant]
     Dosage: 0.2 MG DAILY
     Route: 048
  7. PARIET [Concomitant]
     Dosage: 10 MG
     Route: 048
     Dates: start: 20080916
  8. SUCRALFATE [Concomitant]
     Dosage: 2 G
     Route: 048
     Dates: start: 20080916
  9. DORNER [Concomitant]
     Dosage: 120 UG
     Route: 048
     Dates: start: 19990101
  10. LENDORMIN [Concomitant]
     Dosage: 0.25 MG
     Route: 048
     Dates: start: 20010825
  11. ZYLORIC [Concomitant]
     Dosage: 200 MG
     Route: 048
     Dates: start: 19990101
  12. FAD [Concomitant]
     Dosage: 20 MG
     Route: 048
     Dates: start: 20050926
  13. HARNAL [Concomitant]
     Dosage: 0.4 MG DAILY
     Route: 048
     Dates: start: 20090209
  14. VESICARE [Concomitant]
     Dosage: 5 MG DAILY
     Route: 048
     Dates: start: 20090209, end: 20090717
  15. ARICEPT [Concomitant]
     Dosage: 3 MG
     Route: 048
     Dates: start: 20091016
  16. ARICEPT [Concomitant]
     Dosage: 5 MG
     Route: 048

REACTIONS (5)
  - BLOOD PRESSURE INCREASED [None]
  - DEMENTIA ALZHEIMER'S TYPE [None]
  - ILEUS [None]
  - POLLAKIURIA [None]
  - PROSTATE CANCER [None]
